FAERS Safety Report 12840195 (Version 2)
Quarter: 2022Q2

REPORT INFORMATION
  Report Type: Spontaneous
  Country: US (occurrence: US)
  Receive Date: 20161012
  Receipt Date: 20220516
  Transmission Date: 20220721
  Serious: Yes (Other)
  Sender: FDA-Public Use
  Company Number: US-BAYER-2016-195164

PATIENT
  Age: 60 Year
  Sex: Female

DRUGS (1)
  1. GADAVIST [Suspect]
     Active Substance: GADOBUTROL
     Indication: Scan with contrast
     Dosage: 2 ML (1 MMOL/ ML), ONCE

REACTIONS (5)
  - Off label use [None]
  - Incorrect route of product administration [None]
  - Pain [None]
  - Muscle spasms [None]
  - Pain in extremity [None]
